FAERS Safety Report 5229375-0 (Version None)
Quarter: 2007Q1

REPORT INFORMATION
  Report Type: 
  Country: None (occurrence: None)
  Receive Date: 20061201
  Receipt Date: 20060912
  Transmission Date: 20070707
  Serious: No
  Sender: FDA-Public Use
  Company Number: 2006PV021104

PATIENT
  Age: 72 Year
  Sex: Male
  Weight: 120.2032 kg

DRUGS (24)
  1. BYETTA [Suspect]
     Indication: DIABETES MELLITUS NON-INSULIN-DEPENDENT
     Dosage: SEE IMAGE
     Route: 058
     Dates: start: 20060101, end: 20060101
  2. BYETTA [Suspect]
     Indication: DIABETES MELLITUS NON-INSULIN-DEPENDENT
     Dosage: SEE IMAGE
     Route: 058
     Dates: start: 20060101, end: 20060101
  3. BYETTA [Suspect]
     Indication: DIABETES MELLITUS NON-INSULIN-DEPENDENT
     Dosage: SEE IMAGE
     Route: 058
     Dates: start: 20060101
  4. LANTUS [Concomitant]
  5. NOVOLOG [Concomitant]
  6. NPH INSULIN [Concomitant]
  7. REGULAR INSULIN [Concomitant]
  8. POTASSIUM ACETATE [Concomitant]
  9. SYNTHROID [Concomitant]
  10. MULTIVIT [Concomitant]
  11. NEBULIZER TREATMENTS [Concomitant]
  12. ASPIRIN [Concomitant]
  13. NEXIUM [Concomitant]
  14. TYLENOL EXTRA-STRENGTH [Concomitant]
  15. METOPROLOL SUCCINATE [Concomitant]
  16. LISINOPRIL [Concomitant]
  17. LIPITOR [Concomitant]
  18. ISOSORBIDE [Concomitant]
  19. ALLOPURINOL [Concomitant]
  20. GEMFIBROZIL [Concomitant]
  21. COUMADIN [Concomitant]
  22. PAXIL [Concomitant]
  23. FUROSEMIDE [Concomitant]
  24. PENTOXIFYLLINE [Concomitant]

REACTIONS (5)
  - BLOOD GLUCOSE INCREASED [None]
  - FOOD CRAVING [None]
  - HEART RATE INCREASED [None]
  - NAUSEA [None]
  - WEIGHT DECREASED [None]
